FAERS Safety Report 7448880-X (Version None)
Quarter: 2011Q2

REPORT INFORMATION
  Report Type: 
  Country: None (occurrence: None)
  Receive Date: 20110429
  Receipt Date: 20110106
  Transmission Date: 20111010
  Serious: No
  Sender: FDA-Public Use
  Company Number: US-ASTRAZENECA-2010SE39265

PATIENT
  Age: 86 Year
  Sex: Male

DRUGS (2)
  1. NEXIUM [Suspect]
     Indication: GASTROOESOPHAGEAL REFLUX DISEASE
     Route: 048
     Dates: start: 20100820
  2. NEXIUM [Suspect]
     Indication: FLATULENCE
     Route: 048
     Dates: start: 20100820

REACTIONS (5)
  - MEDICATION ERROR [None]
  - ABDOMINAL PAIN [None]
  - FLATULENCE [None]
  - NERVOUSNESS [None]
  - ABDOMINAL DISTENSION [None]
